FAERS Safety Report 14084494 (Version 1)
Quarter: 2017Q4

REPORT INFORMATION
  Report Type: Spontaneous
  Country: DE (occurrence: DE)
  Receive Date: 20171013
  Receipt Date: 20171013
  Transmission Date: 20180321
  Serious: Yes (Life-Threatening, Hospitalization)
  Sender: FDA-Public Use
  Company Number: DE-TEVA-814442GER

PATIENT
  Age: 80 Year
  Sex: Female

DRUGS (1)
  1. TRIMETHOPRIM/SULFAMETHOXAZOL [Suspect]
     Active Substance: SULFAMETHOXAZOLE\TRIMETHOPRIM
     Indication: PRODUCT USED FOR UNKNOWN INDICATION
     Dosage: UNKNOWN; SECOND INTAKE
     Route: 048

REACTIONS (6)
  - Nausea [Unknown]
  - Pruritus [Unknown]
  - Pulseless electrical activity [Unknown]
  - Abdominal pain upper [Unknown]
  - Dyspnoea [Unknown]
  - Malaise [Unknown]

NARRATIVE: CASE EVENT DATE: 20171003
